FAERS Safety Report 21037716 (Version 2)
Quarter: 2022Q3

REPORT INFORMATION
  Report Type: Spontaneous
  Country: JP (occurrence: JP)
  Receive Date: 20220704
  Receipt Date: 20220721
  Transmission Date: 20221027
  Serious: Yes (Hospitalization, Other)
  Sender: FDA-Public Use
  Company Number: JP-SUN PHARMACEUTICAL INDUSTRIES LTD-2022RR-342284

PATIENT
  Age: 72 Year
  Sex: Female

DRUGS (9)
  1. ACETAMINOPHEN [Suspect]
     Active Substance: ACETAMINOPHEN
     Indication: Pyrexia
     Dosage: UNK
     Route: 065
  2. ACETAMINOPHEN [Suspect]
     Active Substance: ACETAMINOPHEN
     Indication: Influenza
  3. PREDNISOLONE [Suspect]
     Active Substance: PREDNISOLONE
     Indication: SJS-TEN overlap
     Dosage: 60 MILLIGRAM, DAILY, 1 MG/KG/DAY
     Route: 048
  4. TRANEXAMIC ACID [Suspect]
     Active Substance: TRANEXAMIC ACID
     Indication: Pyrexia
     Dosage: UNK
     Route: 065
  5. TRANEXAMIC ACID [Suspect]
     Active Substance: TRANEXAMIC ACID
     Indication: Influenza
  6. METHYLPREDNISOLONE [Suspect]
     Active Substance: METHYLPREDNISOLONE
     Indication: SJS-TEN overlap
     Dosage: 1000 MILLIGRAM, DAILY
     Route: 042
  7. CEFCAPENE PIVOXIL HYDROCHLORIDE HYDRATE [Concomitant]
     Active Substance: CEFCAPENE PIVOXIL HYDROCHLORIDE HYDRATE
     Indication: Pyrexia
     Dosage: UNK
     Route: 065
  8. CEFCAPENE PIVOXIL HYDROCHLORIDE HYDRATE [Concomitant]
     Active Substance: CEFCAPENE PIVOXIL HYDROCHLORIDE HYDRATE
     Indication: Influenza
  9. HUMAN IMMUNOGLOBULIN G [Concomitant]
     Active Substance: HUMAN IMMUNOGLOBULIN G
     Indication: SJS-TEN overlap
     Dosage: 400 MILLIGRAM/KILOGRAM, DAILY
     Route: 042

REACTIONS (2)
  - Mucous membrane pemphigoid [Recovering/Resolving]
  - Drug ineffective [Unknown]
